FAERS Safety Report 25390909 (Version 1)
Quarter: 2025Q2

REPORT INFORMATION
  Report Type: Spontaneous
  Country: FR (occurrence: FR)
  Receive Date: 20250603
  Receipt Date: 20250603
  Transmission Date: 20250716
  Serious: Yes (Hospitalization)
  Sender: MYLAN
  Company Number: None

PATIENT
  Age: 52 Year
  Sex: Female
  Weight: 98 kg

DRUGS (4)
  1. CELEBREX [Suspect]
     Active Substance: CELECOXIB
     Indication: Tendon disorder
  2. CELEBREX [Suspect]
     Active Substance: CELECOXIB
     Route: 048
  3. CELEBREX [Suspect]
     Active Substance: CELECOXIB
     Route: 048
  4. CELEBREX [Suspect]
     Active Substance: CELECOXIB

REACTIONS (1)
  - Immune thrombocytopenia [Recovering/Resolving]

NARRATIVE: CASE EVENT DATE: 20250504
